FAERS Safety Report 8505778-3 (Version None)
Quarter: 2012Q3

REPORT INFORMATION
  Report Type: 
  Country: None (occurrence: None)
  Receive Date: 20120712
  Receipt Date: 20120706
  Transmission Date: 20120928
  Serious: Yes (Other)
  Sender: FDA-Public Use
  Company Number: PHEH2012US005488

PATIENT
  Sex: Female
  Weight: 44.444 kg

DRUGS (1)
  1. GILENYA [Suspect]
     Indication: MULTIPLE SCLEROSIS
     Dosage: 0.5 MG, DAILY
     Route: 048
     Dates: start: 20120118

REACTIONS (5)
  - GASTRIC DISORDER [None]
  - RETCHING [None]
  - APHAGIA [None]
  - DECREASED APPETITE [None]
  - NAUSEA [None]
